FAERS Safety Report 12699693 (Version 1)
Quarter: 2016Q3

REPORT INFORMATION
  Report Type: Spontaneous
  Country: US (occurrence: US)
  Receive Date: 20160830
  Receipt Date: 20160830
  Transmission Date: 20161109
  Serious: No
  Sender: FDA-Public Use
  Company Number: US-AMNEAL PHARMACEUTICALS-2016AMN00086

PATIENT
  Sex: Male

DRUGS (1)
  1. SPIRONOLACTONE. [Suspect]
     Active Substance: SPIRONOLACTONE
     Indication: HYPERTENSION

REACTIONS (3)
  - Blood pressure increased [Recovered/Resolved]
  - Product formulation issue [Not Recovered/Not Resolved]
  - Drug ineffective [Not Recovered/Not Resolved]
